FAERS Safety Report 5321052-0 (Version None)
Quarter: 2007Q2

REPORT INFORMATION
  Report Type: 
  Country: None (occurrence: None)
  Receive Date: 20070507
  Receipt Date: 20070507
  Transmission Date: 20071010
  Serious: Yes (Hospitalization)
  Sender: FDA-Public Use
  Company Number: None

PATIENT
  Sex: Female

DRUGS (1)
  1. IBANDRONATE  150MG  (BONIVA) [Suspect]
     Indication: OSTEOPOROSIS
     Dosage: GIVEN ONCE P.O. 2007/01/27
     Dates: start: 20070127

REACTIONS (1)
  - SPINAL OSTEOARTHRITIS [None]
